FAERS Safety Report 4666838-0 (Version None)
Quarter: 2005Q2

REPORT INFORMATION
  Report Type: 
  Country: None (occurrence: None)
  Receive Date: 20050519
  Receipt Date: 20050303
  Transmission Date: 20051028
  Serious: Yes (Hospitalization)
  Sender: FDA-Public Use
  Company Number: US-MERCK-0503USA00852

PATIENT
  Age: 57 Year
  Sex: Male

DRUGS (7)
  1. VIOXX [Suspect]
     Route: 048
     Dates: start: 20000101, end: 20040101
  2. VIOXX [Suspect]
     Route: 048
  3. DIOVAN [Concomitant]
     Route: 065
  4. PRAVACHOL [Concomitant]
     Route: 048
  5. NIASPAN [Concomitant]
     Route: 048
  6. LASIX [Concomitant]
     Route: 048
  7. NORVASC [Concomitant]
     Route: 065
     Dates: end: 20020801

REACTIONS (5)
  - ADVERSE EVENT [None]
  - HYPERCHOLESTEROLAEMIA [None]
  - HYPERTENSION [None]
  - MYOCARDIAL INFARCTION [None]
  - POLYTRAUMATISM [None]
